FAERS Safety Report 9971461 (Version 1)
Quarter: 2014Q1

REPORT INFORMATION
  Report Type: Spontaneous
  Country: US (occurrence: None)
  Receive Date: 20140305
  Receipt Date: 20140305
  Transmission Date: 20141002
  Serious: Yes (Hospitalization)
  Sender: FDA-Public Use
  Company Number: None

PATIENT
  Age: 60 Year
  Sex: Female
  Weight: 77.11 kg

DRUGS (1)
  1. ALENDRONATE [Suspect]
     Indication: OSTEOPOROSIS POSTMENOPAUSAL
     Dosage: 1 PILL ONCE WEEKLY TAKEN BY MOUTH
     Route: 048
     Dates: start: 20140301, end: 20140301

REACTIONS (6)
  - Hypersensitivity [None]
  - Swelling [None]
  - Pruritus [None]
  - Erythema [None]
  - Dyspnoea [None]
  - Rash macular [None]
